FAERS Safety Report 15420565 (Version 3)
Quarter: 2018Q4

REPORT INFORMATION
  Report Type: Spontaneous
  Country: US (occurrence: US)
  Receive Date: 20180924
  Receipt Date: 20181023
  Transmission Date: 20190204
  Serious: Yes (Death, Hospitalization, Other)
  Sender: FDA-Public Use
  Company Number: US-GILEAD-2018-0363881

PATIENT
  Age: 36 Year
  Sex: Female
  Weight: 103.9 kg

DRUGS (3)
  1. YESCARTA [Suspect]
     Active Substance: AXICABTAGENE CILOLEUCEL
     Indication: DIFFUSE LARGE B-CELL LYMPHOMA
     Dosage: 68 ML, UNK
     Route: 042
     Dates: start: 20180910, end: 20180910
  2. FENTANYL. [Concomitant]
     Active Substance: FENTANYL
     Dosage: PATCH
  3. ACYCLOVIR                          /00587301/ [Concomitant]
     Active Substance: ACYCLOVIR

REACTIONS (7)
  - Brain herniation [Fatal]
  - Pyrexia [Recovered/Resolved]
  - Brain oedema [Fatal]
  - Urinary tract infection [Unknown]
  - Cytokine release syndrome [Recovered/Resolved]
  - Hypotension [Unknown]
  - Back pain [Unknown]

NARRATIVE: CASE EVENT DATE: 201809
